FAERS Safety Report 5152422-1 (Version None)
Quarter: 2006Q4

REPORT INFORMATION
  Report Type: 
  Country: None (occurrence: None)
  Receive Date: 20061116
  Receipt Date: 20060502
  Transmission Date: 20070319
  Serious: Yes (Hospitalization, Other)
  Sender: FDA-Public Use
  Company Number: US-ELI_LILLY_AND_COMPANY-US200607002178

PATIENT
  Age: 35 Year
  Sex: Female
  Weight: 74.829 kg

DRUGS (7)
  1. ZYPREXA [Suspect]
     Indication: DEPRESSION
     Dates: start: 19980101, end: 20000101
  2. FLUOXETINE                              /N/A/ [Concomitant]
     Dates: start: 19980101, end: 19990101
  3. MIRTAZAPINE [Concomitant]
     Dates: start: 19980101, end: 19990101
  4. PAROXETINE HCL [Concomitant]
     Dates: start: 19980101, end: 19990101
  5. SERTRALINE [Concomitant]
     Dates: start: 19980101, end: 19990101
  6. VENLAFAXIINE HCL [Concomitant]
     Dates: start: 19980101, end: 19990101
  7. PREDNISONE TAB [Concomitant]
     Dates: start: 19980101

REACTIONS (10)
  - BLOOD CHOLESTEROL ABNORMAL [None]
  - BLOOD TRIGLYCERIDES INCREASED [None]
  - CARDIAC DISORDER [None]
  - DIABETES MELLITUS [None]
  - DIABETIC KETOACIDOSIS [None]
  - HYPERTENSION [None]
  - KETONURIA [None]
  - LACTIC ACIDOSIS [None]
  - METABOLIC DISORDER [None]
  - VISION BLURRED [None]
